FAERS Safety Report 20578215 (Version 1)
Quarter: 2022Q1

REPORT INFORMATION
  Report Type: Other
  Country: US (occurrence: None)
  Receive Date: 20220310
  Receipt Date: 20220310
  Transmission Date: 20220423
  Serious: Yes (Hospitalization)
  Sender: FDA-Public Use
  Company Number: US-ROCHE-3038793

PATIENT
  Age: 67 Year
  Sex: Female
  Weight: 76.272 kg

DRUGS (2)
  1. ACTEMRA [Suspect]
     Active Substance: TOCILIZUMAB
     Indication: Rheumatoid arthritis
     Dosage: RECEIVED 1/2 DOSE ;ONGOING: NO
     Route: 042
     Dates: start: 202105, end: 202105
  2. ORENCIA [Concomitant]
     Active Substance: ABATACEPT

REACTIONS (3)
  - Platelet disorder [Recovered/Resolved]
  - Mouth ulceration [Recovered/Resolved]
  - Asthenia [Not Recovered/Not Resolved]

NARRATIVE: CASE EVENT DATE: 20210501
